FAERS Safety Report 16633850 (Version 3)
Quarter: 2019Q3

REPORT INFORMATION
  Report Type: Report from Study
  Country: US (occurrence: US)
  Receive Date: 20190725
  Receipt Date: 20190828
  Transmission Date: 20191004
  Serious: Yes (Hospitalization, Other)
  Sender: FDA-Public Use
  Company Number: US-TAKEDA-2018TUS007542

PATIENT
  Age: 78 Year
  Sex: Female

DRUGS (2)
  1. PONATINIB [Suspect]
     Active Substance: PONATINIB
     Indication: CHRONIC MYELOID LEUKAEMIA
     Dosage: 30 MILLIGRAM, QD
     Route: 048
     Dates: start: 201802
  2. PONATINIB [Suspect]
     Active Substance: PONATINIB
     Dosage: 15 MILLIGRAM, QD
     Route: 048
     Dates: start: 20190109

REACTIONS (19)
  - Pruritus [Unknown]
  - Arthritis [Unknown]
  - Dizziness [Unknown]
  - Rib fracture [Unknown]
  - Back pain [Unknown]
  - Road traffic accident [Unknown]
  - Rash [Unknown]
  - Malaise [Unknown]
  - Infection [Unknown]
  - Rash macular [Recovering/Resolving]
  - Fatigue [Unknown]
  - Cystitis [Recovering/Resolving]
  - Neoplasm progression [Unknown]
  - Headache [Unknown]
  - Pain in extremity [Unknown]
  - Abdominal pain upper [Unknown]
  - Product dose omission [Unknown]
  - Dry skin [Unknown]
  - Neck pain [Unknown]

NARRATIVE: CASE EVENT DATE: 20190118
